FAERS Safety Report 16158366 (Version 1)
Quarter: 2019Q2

REPORT INFORMATION
  Report Type: Spontaneous
  Country: TW (occurrence: TW)
  Receive Date: 20190404
  Receipt Date: 20190404
  Transmission Date: 20190711
  Serious: Yes (Other)
  Sender: FDA-Public Use
  Company Number: PHHY2019TW071412

PATIENT
  Age: 49 Year
  Sex: Female

DRUGS (1)
  1. ZOLPIDEM TARTRATE. [Suspect]
     Active Substance: ZOLPIDEM TARTRATE
     Indication: INSOMNIA
     Dosage: 6.25 MG, QD, CHRONIC RELEASE (ZCR) AT NIGHT
     Route: 065

REACTIONS (6)
  - Fatigue [Unknown]
  - Depressed mood [Unknown]
  - Feeling guilty [Unknown]
  - Disturbance in attention [Unknown]
  - Depression [Unknown]
  - Decreased interest [Unknown]

NARRATIVE: CASE EVENT DATE: 201705
